FAERS Safety Report 8269742-4 (Version None)
Quarter: 2012Q2

REPORT INFORMATION
  Report Type: 
  Country: None (occurrence: None)
  Receive Date: 20120405
  Receipt Date: 20120327
  Transmission Date: 20120825
  Serious: Yes (Hospitalization)
  Sender: FDA-Public Use
  Company Number: DKLU1077939

PATIENT
  Age: 3 Year
  Sex: Female

DRUGS (3)
  1. TOPAMAX [Concomitant]
  2. SABRIL [Suspect]
     Indication: INFANTILE SPASMS
     Dosage: 1500 MG MILLIGRAM(S), 2 IN 1 D), ORAL
     Route: 048
     Dates: start: 20091201
  3. SABRIL [Suspect]
     Indication: CONVULSION
     Dosage: 1500 MG MILLIGRAM(S), 2 IN 1 D), ORAL
     Route: 048
     Dates: start: 20091201

REACTIONS (2)
  - STATUS EPILEPTICUS [None]
  - POSTICTAL STATE [None]
